FAERS Safety Report 7539505 (Version 3)
Quarter: 2012Q4

REPORT INFORMATION
  Report Type: 
  Country: US (occurrence: US)
  Receive Date: 20100813
  Receipt Date: 20120829
  Transmission Date: 20130627
  Serious: Yes (Hospitalization)
  Sender: FDA-Public Use
  Company Number: US-BAYER-201030171NA

PATIENT
  Age: 48 Year
  Sex: Female
  Weight: 62.59 kg

DRUGS (4)
  1. YAZ [Suspect]
     Indication: CONTRACEPTION
     Dosage: UNK
     Route: 048
     Dates: start: 200607, end: 200905
  2. YAZ [Suspect]
     Indication: PREMENSTRUAL SYNDROME
  3. VITAMIN C [Concomitant]
  4. CLARITIN [Concomitant]

REACTIONS (4)
  - Thrombotic stroke [None]
  - Hypoaesthesia [None]
  - Convulsion [None]
  - Cerebral infarction [None]
